FAERS Safety Report 14085090 (Version 2)
Quarter: 2018Q4

REPORT INFORMATION
  Report Type: Spontaneous
  Country: US (occurrence: US)
  Receive Date: 20171013
  Receipt Date: 20181030
  Transmission Date: 20190204
  Serious: Yes (Death, Life-Threatening, Hospitalization, Other)
  Sender: FDA-Public Use
  Company Number: US-TORRENT-00003490

PATIENT
  Age: 66 Year
  Sex: Male

DRUGS (8)
  1. CASSIA [Concomitant]
     Indication: PRODUCT USED FOR UNKNOWN INDICATION
     Dosage: UNKNOWN
  2. HEPARIN [Concomitant]
     Active Substance: HEPARIN SODIUM
     Indication: PROPHYLAXIS
     Route: 058
  3. CARBAMAZEPINE. [Concomitant]
     Active Substance: CARBAMAZEPINE
     Indication: PRODUCT USED FOR UNKNOWN INDICATION
     Dosage: UNKNOWN
  4. LANSOPRAZOLE. [Concomitant]
     Active Substance: LANSOPRAZOLE
     Indication: PRODUCT USED FOR UNKNOWN INDICATION
     Dosage: UNKNOWN
  5. MACROGOL [Concomitant]
     Active Substance: POLYETHYLENE GLYCOLS
     Indication: PRODUCT USED FOR UNKNOWN INDICATION
     Dosage: UNKNOWN
  6. QUETIAPINE. [Suspect]
     Active Substance: QUETIAPINE
     Indication: PSYCHOTIC DISORDER
     Dosage: SINGLE DOSE OF 400 MG ON DAY 16
  7. PHENYTOIN. [Concomitant]
     Active Substance: PHENYTOIN
     Indication: PRODUCT USED FOR UNKNOWN INDICATION
     Dosage: UNKNOWN
  8. CLOZAPINE. [Suspect]
     Active Substance: CLOZAPINE
     Indication: PSYCHOTIC DISORDER
     Dosage: CLOZAPINE 100 MG?EVERY 12 HOURS WAS RESTARTED ON DAY 11,

REACTIONS (10)
  - Acute respiratory distress syndrome [Recovered/Resolved]
  - Mental status changes [Unknown]
  - Shock [Recovered/Resolved]
  - Constipation [Recovered/Resolved]
  - Gastric hypomotility [Recovered/Resolved]
  - Gastrointestinal necrosis [Fatal]
  - Septic shock [Fatal]
  - Abdominal distension [Recovered/Resolved]
  - Escherichia infection [Fatal]
  - Klebsiella infection [Fatal]
